FAERS Safety Report 4471956-6 (Version None)
Quarter: 2004Q4

REPORT INFORMATION
  Report Type: 
  Country: None (occurrence: None)
  Receive Date: 20041007
  Receipt Date: 20040922
  Transmission Date: 20050328
  Serious: Yes (Other)
  Sender: FDA-Public Use
  Company Number: S04-UKI-06045-02

PATIENT
  Age: 0 Day
  Sex: Male
  Weight: 3.11 kg

DRUGS (1)
  1. CITALOPRAM [Suspect]
     Indication: PANIC DISORDER
     Dosage: 30 MG QD TRANSPLACENTAL
     Route: 064
     Dates: start: 20010410, end: 20031201

REACTIONS (4)
  - BLOOD BILIRUBIN INCREASED [None]
  - FEEDING PROBLEM IN NEWBORN [None]
  - JAUNDICE NEONATAL [None]
  - NEONATAL DISORDER [None]
